FAERS Safety Report 7348412-0 (Version None)
Quarter: 2011Q1

REPORT INFORMATION
  Report Type: 
  Country: None (occurrence: None)
  Receive Date: 20110311
  Receipt Date: 20110302
  Transmission Date: 20110831
  Serious: Yes (Hospitalization)
  Sender: FDA-Public Use
  Company Number: US-ELI_LILLY_AND_COMPANY-US201008007890

PATIENT
  Sex: Female

DRUGS (6)
  1. MORPHINE [Concomitant]
     Indication: BACK PAIN
  2. LIVALO [Concomitant]
     Dates: start: 20101201
  3. FORTEO [Suspect]
     Dosage: 20 UG, DAILY (1/D)
  4. MULTIVITAMIN [Concomitant]
  5. FORTEO [Suspect]
     Indication: OSTEOPOROSIS
     Dosage: 20 UG, DAILY (1/D)
  6. LEVOTHYROXINE [Concomitant]

REACTIONS (4)
  - FRACTURE [None]
  - FATIGUE [None]
  - HOSPITALISATION [None]
  - HYPOAESTHESIA [None]
